FAERS Safety Report 7164841-2 (Version None)
Quarter: 2010Q4

REPORT INFORMATION
  Report Type: 
  Country: None (occurrence: None)
  Receive Date: 20101215
  Receipt Date: 20101207
  Transmission Date: 20110411
  Serious: Yes (Other)
  Sender: FDA-Public Use
  Company Number: US-PFIZER INC-2010166773

PATIENT
  Sex: Female
  Weight: 104 kg

DRUGS (2)
  1. XANAX [Suspect]
     Indication: PANIC ATTACK
     Dosage: 0.5 MG, DAILY
     Route: 048
     Dates: start: 20100801
  2. CHANTIX [Suspect]
     Indication: SMOKING CESSATION THERAPY
     Dosage: UNK
     Route: 048
     Dates: start: 20101111

REACTIONS (2)
  - ANXIETY [None]
  - BLOOD CHOLESTEROL INCREASED [None]
